FAERS Safety Report 11170217 (Version 1)
Quarter: 2015Q2

REPORT INFORMATION
  Report Type: Report from Study
  Country: CA (occurrence: CA)
  Receive Date: 20150608
  Receipt Date: 20150608
  Transmission Date: 20150821
  Serious: Yes (Other)
  Sender: FDA-Public Use
  Company Number: CA-AMGEN-CANSL2015055183

PATIENT
  Age: 68 Year
  Sex: Female

DRUGS (11)
  1. TIAZAC [Concomitant]
     Active Substance: DILTIAZEM HYDROCHLORIDE
     Indication: BLOOD PRESSURE
     Dosage: 240 MG, HS
  2. ENBREL [Suspect]
     Active Substance: ETANERCEPT
     Indication: RHEUMATOID ARTHRITIS
     Dosage: 50 MG, UNK
     Route: 065
     Dates: start: 20140419
  3. ZOPICLONE [Concomitant]
     Active Substance: ZOPICLONE
     Indication: SLEEP DISORDER
  4. ELAVIL [Concomitant]
     Active Substance: AMITRIPTYLINE HYDROCHLORIDE
     Indication: FIBROMYALGIA
     Dosage: 25 MG, UNK
  5. LOSARTAN [Concomitant]
     Active Substance: LOSARTAN
     Dosage: 100 MG, QD
  6. ATORVASTATIN [Concomitant]
     Active Substance: ATORVASTATIN
     Dosage: 40 MG, HS
  7. RABEPRAZOLE [Concomitant]
     Active Substance: RABEPRAZOLE
     Dosage: 20 MG, BID
  8. SYNTHROID [Concomitant]
     Active Substance: LEVOTHYROXINE SODIUM
     Dosage: 1.37 MG, UNK
  9. ASA [Concomitant]
     Active Substance: ASPIRIN
     Dosage: 81 MG, UNK
  10. MORPHINE [Concomitant]
     Active Substance: MORPHINE
     Dosage: 5 MG, PRN
  11. ZOPICLONE [Concomitant]
     Active Substance: ZOPICLONE
     Indication: TINNITUS
     Dosage: 7.5 MG, UNK

REACTIONS (5)
  - Arthritis [Unknown]
  - Limb operation [Recovered/Resolved]
  - Eczema [Unknown]
  - Osteoarthritis [Unknown]
  - Rash [Unknown]

NARRATIVE: CASE EVENT DATE: 2014
